FAERS Safety Report 8960397 (Version 1)
Quarter: 2012Q4

REPORT INFORMATION
  Report Type: 
  Country: US (occurrence: US)
  Receive Date: 20121211
  Receipt Date: 20121211
  Transmission Date: 20130627
  Serious: Yes (Other)
  Sender: FDA-Public Use
  Company Number: CHPA2010US02101

PATIENT
  Sex: Female

DRUGS (2)
  1. PREVACID 24HR 15MG [Suspect]
     Indication: DYSPEPSIA
     Dosage: 30 mg, QD
     Route: 048
     Dates: start: 200912
  2. PREVACID 24HR 15MG [Suspect]
     Dosage: 15 mg BID
     Route: 048
     Dates: end: 20121204

REACTIONS (5)
  - Joint swelling [Recovered/Resolved]
  - Off label use [Unknown]
  - Prescribed overdose [Unknown]
  - Intentional drug misuse [Unknown]
  - Wrong technique in drug usage process [Unknown]
